FAERS Safety Report 5921269-8 (Version None)
Quarter: 2008Q4

REPORT INFORMATION
  Report Type: 
  Country: None (occurrence: None)
  Receive Date: 20081014
  Receipt Date: 20081003
  Transmission Date: 20090506
  Serious: Yes (Hospitalization)
  Sender: FDA-Public Use
  Company Number: 2008-03716

PATIENT
  Age: 70 Year
  Sex: Female

DRUGS (2)
  1. VELCADE [Suspect]
     Indication: MULTIPLE MYELOMA
     Dosage: 1.3 MG,
     Dates: start: 20080701
  2. DEXAMETHASONE TAB [Suspect]
     Indication: MULTIPLE MYELOMA
     Dosage: 10 MG,

REACTIONS (6)
  - CONVULSION [None]
  - DISORIENTATION [None]
  - HYPONATRAEMIA [None]
  - MALAISE [None]
  - MENTAL DISORDER [None]
  - PROTEIN TOTAL DECREASED [None]
